FAERS Safety Report 19927934 (Version 1)
Quarter: 2021Q4

REPORT INFORMATION
  Report Type: Spontaneous
  Country: US (occurrence: US)
  Receive Date: 20211005
  Receipt Date: 20211005
  Transmission Date: 20220304
  Serious: Yes (Hospitalization)
  Sender: FDA-Public Use
  Company Number: None

PATIENT
  Age: 90 Year
  Sex: Male

DRUGS (1)
  1. CAPECITABINE [Suspect]
     Active Substance: CAPECITABINE
     Route: 048
     Dates: start: 202109, end: 202109

REACTIONS (4)
  - Asthenia [None]
  - Fatigue [None]
  - Decreased appetite [None]
  - Hypophagia [None]

NARRATIVE: CASE EVENT DATE: 20210921
